FAERS Safety Report 11242709 (Version 13)
Quarter: 2016Q1

REPORT INFORMATION
  Report Type: Report from Study
  Country: CN (occurrence: CN)
  Receive Date: 20150707
  Receipt Date: 20160304
  Transmission Date: 20160525
  Serious: Yes (Hospitalization)
  Sender: FDA-Public Use
  Company Number: PHHO2015CN011208

PATIENT
  Age: 62 Year
  Sex: Female
  Weight: 58.6 kg

DRUGS (10)
  1. BLINDED PLACEBO [Suspect]
     Active Substance: INVESTIGATIONAL PRODUCT
     Indication: BREAST CANCER METASTATIC
     Dosage: CODE NOT BROKEN
     Route: 048
     Dates: start: 20110414
  2. CEFACLOR. [Concomitant]
     Active Substance: CEFACLOR
     Indication: GINGIVITIS
     Dosage: 2 DF, TID (CAPSULE)
     Route: 048
     Dates: start: 20141106, end: 20150629
  3. METRONIDAZOLE. [Concomitant]
     Active Substance: METRONIDAZOLE
     Indication: GINGIVITIS
     Dosage: 2 DF, BID (CAPSULE)
     Route: 048
     Dates: start: 20141106, end: 20150629
  4. AFINITOR [Suspect]
     Active Substance: EVEROLIMUS
     Indication: BREAST CANCER METASTATIC
     Dosage: CODE NOT BROKEN
     Route: 048
     Dates: start: 20110414
  5. COMPARATOR TRASTUZUMAB [Suspect]
     Active Substance: TRASTUZUMAB
     Dosage: 110 MG, UNK
     Route: 042
     Dates: start: 20150716
  6. COMPARATOR PACLITAXEL [Suspect]
     Active Substance: PACLITAXEL
     Indication: BREAST CANCER METASTATIC
     Dosage: 130 MG, UNK
     Route: 042
     Dates: start: 20110414, end: 20120323
  7. METRONIDAZOLE. [Concomitant]
     Active Substance: METRONIDAZOLE
     Indication: OSTEONECROSIS OF JAW
     Dosage: 500 MG, QD
     Route: 042
     Dates: start: 20150705, end: 20150709
  8. COMPARATOR TRASTUZUMAB [Suspect]
     Active Substance: TRASTUZUMAB
     Indication: BREAST CANCER METASTATIC
     Dosage: 110 MG, UNK
     Route: 042
     Dates: start: 20110414, end: 20150625
  9. BLINDED NO TREATMENT RECEIVED [Suspect]
     Active Substance: INVESTIGATIONAL PRODUCT
     Indication: BREAST CANCER METASTATIC
     Dosage: CODE NOT BROKEN
     Route: 048
     Dates: start: 20110414
  10. ZOMETA [Suspect]
     Active Substance: ZOLEDRONIC ACID
     Indication: METASTASES TO BONE
     Dosage: 4 MG, QMO (EVERY ONE MONTH)
     Route: 042
     Dates: start: 20110326, end: 20140805

REACTIONS (1)
  - Osteonecrosis of jaw [Recovering/Resolving]

NARRATIVE: CASE EVENT DATE: 20150630
